FAERS Safety Report 24934456 (Version 2)
Quarter: 2025Q1

REPORT INFORMATION
  Report Type: Spontaneous
  Country: US (occurrence: US)
  Receive Date: 20250206
  Receipt Date: 20250218
  Transmission Date: 20250409
  Serious: Yes (Hospitalization, Disabling)
  Sender: TEVA
  Company Number: US-TEVA-VS-3292490

PATIENT
  Age: 40 Year
  Sex: Male

DRUGS (7)
  1. CLOPIDOGREL [Suspect]
     Active Substance: CLOPIDOGREL BISULFATE
     Indication: Peripheral artery thrombosis
     Route: 065
  2. APIXABAN [Suspect]
     Active Substance: APIXABAN
     Indication: Peripheral artery thrombosis
     Route: 065
  3. ESTROGENS [Suspect]
     Active Substance: ESTROGENS
     Indication: Transgender hormonal therapy
     Route: 065
  4. HEPARIN [Suspect]
     Active Substance: HEPARIN SODIUM
     Indication: Peripheral artery thrombosis
     Route: 065
  5. ASPIRIN [Suspect]
     Active Substance: ASPIRIN
     Indication: Peripheral artery thrombosis
     Route: 065
  6. WARFARIN [Suspect]
     Active Substance: WARFARIN
     Indication: Peripheral artery thrombosis
     Route: 065
  7. RIVAROXABAN [Suspect]
     Active Substance: RIVAROXABAN
     Indication: Peripheral artery thrombosis
     Route: 065

REACTIONS (2)
  - Peripheral artery thrombosis [Recovered/Resolved with Sequelae]
  - Drug ineffective [Unknown]
